FAERS Safety Report 4538402-5 (Version None)
Quarter: 2004Q4

REPORT INFORMATION
  Report Type: 
  Country: None (occurrence: None)
  Receive Date: 20041227
  Receipt Date: 20041111
  Transmission Date: 20050328
  Serious: Yes (Hospitalization, Other)
  Sender: FDA-Public Use
  Company Number: JP-BRISTOL-MYERS SQUIBB COMPANY-12767943

PATIENT
  Age: 27 Year
  Sex: Female

DRUGS (9)
  1. ENDOXAN [Suspect]
     Indication: LUPUS NEPHRITIS
     Route: 041
     Dates: start: 20020601, end: 20020801
  2. RHEUMATREX [Suspect]
     Indication: ARTHRITIS
     Route: 048
     Dates: start: 19980301, end: 20021004
  3. PREDNISOLONE [Concomitant]
     Dates: start: 19910101
  4. BEZATOL [Concomitant]
     Dates: start: 19971001
  5. TORSEMIDE [Concomitant]
     Dates: start: 19971001
  6. PRORENAL [Concomitant]
     Dates: start: 19971001
  7. WARFARIN SODIUM [Concomitant]
     Dates: start: 19971001
  8. LORCAM [Concomitant]
     Dates: start: 20010401
  9. PERSANTIN [Concomitant]
     Dates: start: 20010401

REACTIONS (3)
  - DENTAL CARIES [None]
  - MYELODYSPLASTIC SYNDROME [None]
  - PANCYTOPENIA [None]
